FAERS Safety Report 16712665 (Version 4)
Quarter: 2019Q3

REPORT INFORMATION
  Report Type: Spontaneous
  Country: IT (occurrence: IT)
  Receive Date: 20190816
  Receipt Date: 20190919
  Transmission Date: 20191004
  Serious: Yes (Hospitalization, Other)
  Sender: FDA-Public Use
  Company Number: PHHY2019IT187888

PATIENT
  Age: 54 Year
  Sex: Male

DRUGS (2)
  1. ZOLPIDEM [Suspect]
     Active Substance: ZOLPIDEM TARTRATE
     Indication: PRODUCT USED FOR UNKNOWN INDICATION
     Dosage: 300 MG, QD
     Route: 065
  2. METHADONE [Suspect]
     Active Substance: METHADONE HYDROCHLORIDE
     Indication: PRODUCT USED FOR UNKNOWN INDICATION
     Dosage: UNK
     Route: 065

REACTIONS (8)
  - Alanine aminotransferase increased [Unknown]
  - Drug abuse [Unknown]
  - Hypertransaminasaemia [Unknown]
  - Gamma-glutamyltransferase increased [Unknown]
  - Intentional overdose [Unknown]
  - Drug dependence [Unknown]
  - Overdose [Unknown]
  - Aspartate aminotransferase increased [Unknown]
